FAERS Safety Report 11610809 (Version 2)
Quarter: 2015Q4

REPORT INFORMATION
  Report Type: Spontaneous
  Country: US (occurrence: US)
  Receive Date: 20151008
  Receipt Date: 20151008
  Transmission Date: 20160304
  Serious: Yes (Death)
  Sender: FDA-Public Use
  Company Number: US-ACTAVIS-2015-21401

PATIENT
  Age: 68 Year
  Sex: Male

DRUGS (10)
  1. AZITHROMYCIN [Interacting]
     Active Substance: AZITHROMYCIN ANHYDROUS
     Indication: TOOTHACHE
     Dosage: UNK
     Route: 065
  2. MAGNESIUM (UNKNOWN) [Interacting]
     Active Substance: MAGNESIUM
     Indication: DIALYSIS
     Dosage: UNK
     Route: 065
  3. CALCIUM [Suspect]
     Active Substance: CALCIUM
     Indication: DIALYSIS
     Dosage: UNK
     Route: 065
  4. NIFEDIPINE. [Concomitant]
     Active Substance: NIFEDIPINE
     Indication: PRODUCT USED FOR UNKNOWN INDICATION
     Dosage: 90 MG, QHS
     Route: 065
  5. ACETATE RINGERS [Interacting]
     Active Substance: CALCIUM CHLORIDE\POTASSIUM CHLORIDE\SODIUM ACETATE
     Indication: DIALYSIS
     Dosage: UNK
     Route: 065
  6. BICARBONATE [Interacting]
     Active Substance: BICARBONATE ION
     Indication: DIALYSIS
     Dosage: HIGH BICARBONATE BATH
     Route: 065
  7. OMEPRAZOLE (ACTAVIS LABORATORIES FL) [Interacting]
     Active Substance: OMEPRAZOLE
     Indication: GASTROOESOPHAGEAL REFLUX DISEASE
     Dosage: 20 MG, DAILY
     Route: 065
  8. CALCIUM ACETATE. [Suspect]
     Active Substance: CALCIUM ACETATE
     Indication: PRODUCT USED FOR UNKNOWN INDICATION
     Dosage: 3 DF, UNK
     Route: 065
  9. CINACALCET [Concomitant]
     Active Substance: CINACALCET
     Indication: PRODUCT USED FOR UNKNOWN INDICATION
     Dosage: 30 MG, QHS
     Route: 065
  10. POTASSIUM CHLORIDE. [Interacting]
     Active Substance: POTASSIUM CHLORIDE
     Indication: DIALYSIS
     Dosage: 2 MEQ/L (INSTEAD OF 3 MEQ/L)
     Route: 065

REACTIONS (4)
  - Sudden cardiac death [Fatal]
  - Electrocardiogram QT prolonged [Fatal]
  - Incorrect dose administered [Fatal]
  - Drug interaction [Fatal]
